FAERS Safety Report 8537722-7 (Version None)
Quarter: 2012Q3

REPORT INFORMATION
  Report Type: 
  Country: None (occurrence: None)
  Receive Date: 20120725
  Receipt Date: 20120718
  Transmission Date: 20120928
  Serious: Yes (Other)
  Sender: FDA-Public Use
  Company Number: PHHY2012IT061810

PATIENT
  Age: 67 Year
  Sex: Female

DRUGS (11)
  1. NORTRIPTYLINE - FLUPHENAZINE [Concomitant]
  2. CARVEDILOL [Interacting]
  3. BARNIDIPINE [Interacting]
  4. LINEZOLID [Interacting]
     Dosage: 600 MG, Q48H
  5. DOXAZOSIN MESYLATE [Concomitant]
  6. PREDNISONE [Concomitant]
  7. LINEZOLID [Interacting]
     Indication: NOCARDIOSIS
     Dosage: 600 MG, Q12H
  8. OXCARBAZEPINE [Concomitant]
  9. OMEPRAZOLE [Suspect]
  10. LINEZOLID [Interacting]
     Dosage: 600 MG, Q72H
  11. CYCLOSPORINE [Concomitant]

REACTIONS (5)
  - RED BLOOD CELL COUNT DECREASED [None]
  - DRUG INTERACTION [None]
  - HYPERLACTACIDAEMIA [None]
  - HAEMOGLOBIN DECREASED [None]
  - PLATELET COUNT DECREASED [None]
